FAERS Safety Report 6758631-X (Version None)
Quarter: 2010Q2

REPORT INFORMATION
  Report Type: 
  Country: None (occurrence: None)
  Receive Date: 20100607
  Receipt Date: 20100603
  Transmission Date: 20101027
  Serious: Yes (Death)
  Sender: FDA-Public Use
  Company Number: US-RB-010283-10

PATIENT
  Age: 31 Year
  Sex: Male

DRUGS (5)
  1. SUBOXONE [Suspect]
     Route: 065
     Dates: end: 20090406
  2. SUBOXONE [Suspect]
     Route: 065
     Dates: start: 20090407
  3. SUBOXONE [Suspect]
     Dates: end: 20100520
  4. ALCOHOL [Suspect]
     Dosage: 2 GLASSES
     Route: 065
  5. LEXAPRO [Concomitant]
     Indication: DEPRESSION
     Route: 065
     Dates: end: 20100520

REACTIONS (3)
  - DROWNING [None]
  - DRUG INTERACTION [None]
  - LOSS OF CONSCIOUSNESS [None]
